FAERS Safety Report 8602857-7 (Version None)
Quarter: 2012Q3

REPORT INFORMATION
  Report Type: 
  Country: None (occurrence: None)
  Receive Date: 20120817
  Receipt Date: 20120808
  Transmission Date: 20120928
  Serious: Yes (Other)
  Sender: FDA-Public Use
  Company Number: US-GLAXOSMITHKLINE-A0988788A

PATIENT
  Age: 3 Year
  Sex: Male

DRUGS (3)
  1. NASONEX [Concomitant]
  2. FLOVENT [Suspect]
     Indication: ASTHMA
     Dosage: 2PUFF TWICE PER DAY
     Route: 055
     Dates: start: 20120730
  3. ZYRTEC [Concomitant]

REACTIONS (5)
  - ABNORMAL BEHAVIOUR [None]
  - OFF LABEL USE [None]
  - CONTUSION [None]
  - SELF INJURIOUS BEHAVIOUR [None]
  - AGGRESSION [None]
